FAERS Safety Report 8604948 (Version 9)
Quarter: 2012Q4

REPORT INFORMATION
  Report Type: Report from Study
  Country: AR (occurrence: AR)
  Receive Date: 20120608
  Receipt Date: 20120907
  Transmission Date: 20130627
  Serious: Yes (Death, Life-Threatening, Hospitalization)
  Sender: FDA-Public Use
  Company Number: AR-ROCHE-1074608

PATIENT
  Age: 81 Year
  Sex: Female
  Weight: 60 kg

DRUGS (6)
  1. ROACTEMRA [Suspect]
     Indication: RHEUMATOID ARTHRITIS
     Dosage: Last dose prior to SAE: 27/Apr/2012
     Route: 042
     Dates: start: 20120427, end: 20120427
  2. FOLIC ACID [Concomitant]
     Indication: TOXICITY TO VARIOUS AGENTS
     Route: 065
  3. HYDROXYCHLOROQUINE [Concomitant]
     Route: 048
  4. NAPROXEN [Concomitant]
     Route: 048
  5. PREDNISONE [Concomitant]
     Route: 048
  6. METHOTREXATE [Concomitant]
     Dosage: weekly
     Route: 048

REACTIONS (1)
  - Pneumonia [Fatal]
